FAERS Safety Report 9397563 (Version 1)
Quarter: 2013Q3

REPORT INFORMATION
  Report Type: Spontaneous
  Country: US (occurrence: None)
  Receive Date: 20130711
  Receipt Date: 20130711
  Transmission Date: 20140515
  Serious: Yes (Other)
  Sender: FDA-Public Use
  Company Number: None

PATIENT
  Age: 68 Year
  Sex: Male
  Weight: 92 kg

DRUGS (2)
  1. FOSAPREPITANT [Suspect]
     Indication: PREMEDICATION
     Dosage: 150 MG X1  IV
     Route: 042
     Dates: start: 20130610
  2. FOSAPREPITANT [Suspect]
     Indication: CHEMOTHERAPY
     Dosage: 150 MG X1  IV
     Route: 042
     Dates: start: 20130610

REACTIONS (5)
  - Flushing [None]
  - Blood pressure increased [None]
  - Chest discomfort [None]
  - Oxygen saturation increased [None]
  - Infusion related reaction [None]
